FAERS Safety Report 4790195-2 (Version None)
Quarter: 2005Q4

REPORT INFORMATION
  Report Type: 
  Country: None (occurrence: None)
  Receive Date: 20051005
  Receipt Date: 20051005
  Transmission Date: 20060501
  Serious: Yes (Hospitalization)
  Sender: FDA-Public Use
  Company Number: None

PATIENT
  Age: 60 Year
  Sex: Female

DRUGS (7)
  1. MOTRIN [Suspect]
     Indication: ARTHRITIS
     Dosage: 800 MG PO PM
     Route: 048
  2. METOPROLOL [Concomitant]
  3. LEVOTHYROXINE [Concomitant]
  4. FEXOFENADINE HCL [Concomitant]
  5. PAROXETINE HCL [Concomitant]
  6. DOCURATE SODIUM [Concomitant]
  7. ACETAMINOPHEN [Concomitant]

REACTIONS (3)
  - BLOOD PRESSURE INCREASED [None]
  - SWELLING FACE [None]
  - SWOLLEN TONGUE [None]
